FAERS Safety Report 9456125 (Version 2)
Quarter: 2013Q3

REPORT INFORMATION
  Report Type: Spontaneous
  Country: FR (occurrence: None)
  Receive Date: 20130808
  Receipt Date: 20130808
  Transmission Date: 20140515
  Serious: Yes (Hospitalization)
  Sender: FDA-Public Use
  Company Number: 1825384

PATIENT
  Age: 10 Year
  Sex: Male

DRUGS (2)
  1. CARBOPLATIN [Suspect]
     Indication: METASTASES TO BONE
     Route: 042
     Dates: start: 20121101
  2. CARBOPLATIN [Suspect]
     Indication: HEPATOCELLULAR CARCINOMA
     Route: 042
     Dates: start: 20121101

REACTIONS (3)
  - Aplasia [None]
  - Hyperkalaemia [None]
  - Blood creatinine increased [None]
